FAERS Safety Report 15612299 (Version 1)
Quarter: 2018Q4

REPORT INFORMATION
  Report Type: Spontaneous
  Country: US (occurrence: US)
  Receive Date: 20181113
  Receipt Date: 20181113
  Transmission Date: 20190205
  Serious: No
  Sender: FDA-Public Use
  Company Number: US-GLAXOSMITHKLINE-US2018201719

PATIENT
  Age: 53 Year
  Sex: Male

DRUGS (1)
  1. NICODERM CQ [Suspect]
     Active Substance: NICOTINE
     Indication: SMOKING CESSATION THERAPY
     Dosage: 21 MG, UNK
     Route: 062
     Dates: start: 20181029, end: 20181103

REACTIONS (5)
  - Pruritus [Unknown]
  - Scab [Unknown]
  - Rash [Unknown]
  - Limb injury [Unknown]
  - Expired product administered [Unknown]

NARRATIVE: CASE EVENT DATE: 20181029
